FAERS Safety Report 8367869-X (Version None)
Quarter: 2012Q2

REPORT INFORMATION
  Report Type: 
  Country: None (occurrence: None)
  Receive Date: 20120517
  Receipt Date: 20120508
  Transmission Date: 20120825
  Serious: No
  Sender: FDA-Public Use
  Company Number: US-ASTRAZENECA-2012SE29830

PATIENT
  Age: 48 Year
  Sex: Male
  Weight: 68 kg

DRUGS (17)
  1. OMEPRAZOLE [Suspect]
     Indication: DYSPEPSIA
     Route: 048
  2. LORAZEPAM [Concomitant]
  3. VITAMIN D [Concomitant]
  4. ZANAFLEX [Concomitant]
  5. CRESTOR [Suspect]
     Indication: BLOOD TRIGLYCERIDES INCREASED
     Route: 048
     Dates: start: 20111101
  6. AMLODIPINE BESYLATE [Concomitant]
  7. METHADONE [Concomitant]
  8. RANITIDINE [Concomitant]
  9. ASPIRIN [Concomitant]
  10. LORATADINE [Concomitant]
  11. PROPRANOLOL [Concomitant]
     Indication: BLOOD PRESSURE ABNORMAL
  12. TRAZIDONE [Concomitant]
  13. NITROGLYCERIDE [Concomitant]
  14. FIORICET [Concomitant]
  15. CRESTOR [Suspect]
     Indication: BLOOD CHOLESTEROL INCREASED
     Route: 048
     Dates: start: 20111101
  16. PERCUSET [Concomitant]
     Indication: BACK PAIN
  17. PROAIR HFA [Concomitant]
     Indication: DYSPNOEA

REACTIONS (6)
  - FATIGUE [None]
  - MUSCULAR WEAKNESS [None]
  - AMNESIA [None]
  - ASTHENIA [None]
  - PAIN IN EXTREMITY [None]
  - HEADACHE [None]
